FAERS Safety Report 5834350-9 (Version None)
Quarter: 2008Q3

REPORT INFORMATION
  Report Type: 
  Country: None (occurrence: None)
  Receive Date: 20080805
  Receipt Date: 20080724
  Transmission Date: 20090109
  Serious: Yes (Death, Life-Threatening)
  Sender: FDA-Public Use
  Company Number: GB-PFIZER INC-2007010018

PATIENT
  Age: 37 Year
  Sex: Male

DRUGS (3)
  1. HUMATROPE [Suspect]
     Route: 058
     Dates: start: 20050628, end: 20060415
  2. DEXAMETHASONE [Concomitant]
  3. TEGRETOL [Concomitant]

REACTIONS (2)
  - ADENOCARCINOMA [None]
  - CONDITION AGGRAVATED [None]
